FAERS Safety Report 4956733-1 (Version None)
Quarter: 2006Q1

REPORT INFORMATION
  Report Type: 
  Country: None (occurrence: None)
  Receive Date: 20060329
  Receipt Date: 20050725
  Transmission Date: 20060701
  Serious: Yes (Hospitalization, Other)
  Sender: FDA-Public Use
  Company Number: DE-GLAXOSMITHKLINE-D0047165A

PATIENT
  Age: 32 Year
  Sex: Female
  Weight: 55 kg

DRUGS (18)
  1. LAMICTAL [Suspect]
     Indication: EPILEPSY
     Dosage: 100MG THREE TIMES PER DAY
     Route: 048
     Dates: start: 20040601
  2. LAMICTAL [Suspect]
     Route: 048
     Dates: start: 19940103, end: 19950223
  3. CARBAMAZEPINE [Suspect]
     Indication: EPILEPSY
     Dosage: 600MG TWICE PER DAY
     Route: 065
     Dates: start: 19940101, end: 20000101
  4. FOLIC ACID [Concomitant]
     Dosage: 5MG PER DAY
     Route: 065
     Dates: start: 20040601
  5. JODETTEN DEPOT [Concomitant]
     Route: 065
  6. NEURONTIN [Concomitant]
     Indication: EPILEPSY
     Route: 065
     Dates: start: 19960101, end: 19970101
  7. LUMINALETTEN [Concomitant]
     Indication: EPILEPSY
     Route: 065
     Dates: start: 19960101, end: 19990101
  8. GABITRIL [Concomitant]
     Indication: EPILEPSY
     Route: 065
     Dates: start: 19980101, end: 19990101
  9. FRISIUM [Concomitant]
     Indication: EPILEPSY
     Route: 065
     Dates: start: 19990101, end: 19990101
  10. TOPAMAX [Concomitant]
     Indication: EPILEPSY
     Route: 065
     Dates: start: 19990101, end: 20000101
  11. DIAZEPAM [Concomitant]
     Indication: EPILEPSY
     Route: 065
     Dates: start: 20000101, end: 20000101
  12. VALPROATE SODIUM [Concomitant]
     Indication: EPILEPSY
     Route: 065
     Dates: start: 20000101, end: 20010101
  13. TRILEPTAL [Concomitant]
     Indication: EPILEPSY
     Route: 065
     Dates: start: 20000101, end: 20040101
  14. KEPPRA [Concomitant]
     Indication: EPILEPSY
     Route: 065
     Dates: start: 20010101, end: 20010101
  15. FEMOSTON [Concomitant]
     Route: 065
  16. FOSAMAX [Concomitant]
     Indication: OSTEOPOROSIS PROPHYLAXIS
     Route: 065
  17. VITAMINE D3 [Concomitant]
     Route: 065
  18. CALCIUM GLUCONATE [Concomitant]
     Route: 065

REACTIONS (6)
  - ALOPECIA [None]
  - AMENORRHOEA [None]
  - DIZZINESS [None]
  - EPILEPSY [None]
  - ILL-DEFINED DISORDER [None]
  - SOMNOLENCE [None]
